FAERS Safety Report 22635067 (Version 1)
Quarter: 2023Q2

REPORT INFORMATION
  Report Type: Spontaneous
  Country: CN (occurrence: CN)
  Receive Date: 20230623
  Receipt Date: 20230623
  Transmission Date: 20230722
  Serious: Yes (Other)
  Sender: FDA-Public Use
  Company Number: CN-002147023-NVSC2023CN142660

PATIENT

DRUGS (14)
  1. CYCLOSPORINE [Suspect]
     Active Substance: CYCLOSPORINE
     Indication: Foetal exposure during pregnancy
     Dosage: MATERNAL EXPOSURE DURING PREGNANCY: 100 MG IN THE MORNING, 75 MG IN THE EVENING
     Route: 064
     Dates: start: 20210917
  2. CYCLOSPORINE [Suspect]
     Active Substance: CYCLOSPORINE
     Dosage: MATERNAL EXPOSURE DURING PREGNANCY: 100 MG, BID
     Route: 064
     Dates: start: 20210922
  3. ELTROMBOPAG [Suspect]
     Active Substance: ELTROMBOPAG
     Indication: Foetal exposure during pregnancy
     Dosage: MATERNAL EXPOSURE DURING PREGNANCY: 50 MG, QD
     Route: 064
     Dates: start: 20210919
  4. PREDNISONE [Suspect]
     Active Substance: PREDNISONE
     Indication: Foetal exposure during pregnancy
     Dosage: MATERNAL EXPOSURE DURING PREGNANCY: 15 MG,QD
     Route: 064
     Dates: start: 20210916, end: 20210928
  5. HYDROXYCHLOROQUINE [Suspect]
     Active Substance: HYDROXYCHLOROQUINE
     Indication: Foetal exposure during pregnancy
     Dosage: MATERNAL EXPOSURE DURING PREGNANCY:200 MG, QD
     Route: 064
     Dates: start: 20210916
  6. CALCIUM CARBONATE [Suspect]
     Active Substance: CALCIUM CARBONATE
     Indication: Foetal exposure during pregnancy
     Dosage: MATERNAL EXPOSURE DURING PREGNANCY: 600 MG, QD
     Route: 064
     Dates: start: 20210916
  7. ALFACALCIDOL [Suspect]
     Active Substance: ALFACALCIDOL
     Indication: Foetal exposure during pregnancy
     Dosage: MATERNAL EXPOSURE DURING PREGNANCY: 0.5 UG, QD
     Route: 064
     Dates: start: 20210916
  8. FERRIC POLYSACCHARIDE COMPLEX [Suspect]
     Active Substance: FERRIC POLYSACCHARIDE COMPLEX
     Indication: Foetal exposure during pregnancy
     Dosage: MATERNAL EXPOSURE DURING PREGNANCY: 150 MG, QD
     Route: 064
     Dates: start: 20210916
  9. HUMAN IMMUNOGLOBULIN G [Suspect]
     Active Substance: HUMAN IMMUNOGLOBULIN G
     Indication: Foetal exposure during pregnancy
     Dosage: MATERNAL EXPOSURE DURING PREGNANCY: 20G,IV GTT,2 D /WEEK
     Route: 064
     Dates: start: 20210917
  10. HUMAN IMMUNOGLOBULIN G [Suspect]
     Active Substance: HUMAN IMMUNOGLOBULIN G
     Dosage: MATERNAL EXPOSURE DURING PREGNANCY: 20G,IV GTT,2 D /WEEK
     Route: 064
     Dates: start: 20210924, end: 20210925
  11. HUMAN IMMUNOGLOBULIN G [Suspect]
     Active Substance: HUMAN IMMUNOGLOBULIN G
     Dosage: MATERNAL EXPOSURE DURING PREGNANCY: 20G,IV GTT,2 D /WEEK
     Route: 064
     Dates: start: 20210928
  12. METHYLPREDNISOLONE [Suspect]
     Active Substance: METHYLPREDNISOLONE
     Indication: Foetal exposure during pregnancy
     Dosage: MATERNAL EXPOSURE DURING PREGNANCY: 80 MG,IV GTT,QD
     Route: 064
     Dates: start: 20210928
  13. METHYLPREDNISOLONE [Suspect]
     Active Substance: METHYLPREDNISOLONE
     Dosage: MATERNAL EXPOSURE DURING PREGNANCY: 60 MG,IV GTT,QD
     Route: 064
     Dates: start: 20211003
  14. METHYLPREDNISOLONE [Suspect]
     Active Substance: METHYLPREDNISOLONE
     Dosage: MATERNAL EXPOSURE DURING PREGNANCY: 40 MG,IV GTT,QD
     Route: 064
     Dates: start: 20211008

REACTIONS (2)
  - Premature baby [Unknown]
  - Foetal exposure during pregnancy [Unknown]
